FAERS Safety Report 9293662 (Version 3)
Quarter: 2014Q2

REPORT INFORMATION
  Report Type: Spontaneous
  Country: US (occurrence: US)
  Receive Date: 20130516
  Receipt Date: 20140522
  Transmission Date: 20141212
  Serious: No
  Sender: FDA-Public Use
  Company Number: US-009507513-1305USA008452

PATIENT
  Sex: Male
  Weight: 95.69 kg

DRUGS (1)
  1. PROPECIA [Suspect]
     Indication: ALOPECIA
     Dosage: 1 MG, UNK
     Route: 048
     Dates: start: 20001120, end: 20010628

REACTIONS (12)
  - Testicular disorder [Unknown]
  - Scrotal disorder [Unknown]
  - Melanocytic naevus [Unknown]
  - Rectal haemorrhage [Unknown]
  - Haemorrhoids [Unknown]
  - Blood testosterone decreased [Unknown]
  - Sinus arrhythmia [Unknown]
  - Cerumen impaction [Unknown]
  - Cerumen impaction [Unknown]
  - Libido decreased [Unknown]
  - Sexual dysfunction [Not Recovered/Not Resolved]
  - Erectile dysfunction [Unknown]
